FAERS Safety Report 10108458 (Version 2)
Quarter: 2014Q2

REPORT INFORMATION
  Report Type: Spontaneous
  Country: US (occurrence: US)
  Receive Date: 20140425
  Receipt Date: 20140429
  Transmission Date: 20141212
  Serious: Yes (Other)
  Sender: FDA-Public Use
  Company Number: US-ASTRAZENECA-2014SE26742

PATIENT
  Age: 81 Year
  Sex: Female
  Weight: 68.9 kg

DRUGS (11)
  1. BRILINTA [Suspect]
     Route: 048
  2. NEXIUM [Suspect]
     Route: 048
  3. LISINOPRIL [Suspect]
     Route: 048
  4. BUMETANIDE [Concomitant]
  5. KLOR-CON [Concomitant]
  6. LIPITOR [Concomitant]
  7. REMERON [Concomitant]
  8. SYNTHROID [Concomitant]
  9. VITAMIN B12 [Concomitant]
  10. WARFARIN SODIUM [Concomitant]
  11. WARFARIN SODIUM [Concomitant]
     Dosage: 5 MG ONCE DAILY AS REQUIRED

REACTIONS (26)
  - Weight increased [Unknown]
  - Hypothyroidism [Unknown]
  - Diabetes mellitus [Unknown]
  - Abdominal distension [Unknown]
  - Supraventricular tachycardia [Unknown]
  - Atrial fibrillation [Unknown]
  - Hypertension [Unknown]
  - Breath sounds abnormal [Unknown]
  - Dyslipidaemia [Unknown]
  - Oedema [Unknown]
  - Dyspnoea [Unknown]
  - Pulmonary oedema [Unknown]
  - Cardiac failure [Unknown]
  - Aortic valve disease [Unknown]
  - Carotid artery stenosis [Unknown]
  - Mitral valve disease [Unknown]
  - Coronary artery stenosis [Unknown]
  - Transient ischaemic attack [Unknown]
  - Tricuspid valve disease [Unknown]
  - Cardiac failure congestive [Unknown]
  - Extrasystoles [Unknown]
  - Cardiac murmur [Unknown]
  - Atrial flutter [Unknown]
  - Gait disturbance [Unknown]
  - Fatigue [Unknown]
  - Peripheral swelling [Unknown]
